FAERS Safety Report 8598609-7 (Version None)
Quarter: 2012Q3

REPORT INFORMATION
  Report Type: 
  Country: None (occurrence: None)
  Receive Date: 20120803
  Receipt Date: 20120720
  Transmission Date: 20120928
  Serious: Yes (Other)
  Sender: FDA-Public Use
  Company Number: TPA2012A05073

PATIENT
  Age: 64 Year
  Sex: Female

DRUGS (3)
  1. DEXILANT [Suspect]
     Indication: GASTROOESOPHAGEAL REFLUX DISEASE
     Dosage: 1 IN 1 D, PER ORAL
     Route: 048
     Dates: start: 20120720
  2. DEXILANT [Suspect]
     Indication: GASTROOESOPHAGEAL REFLUX DISEASE
     Dosage: 1 IN 1 D, PER ORAL
     Route: 048
     Dates: start: 20120520, end: 20120101
  3. DEXILANT [Suspect]
     Indication: GASTROOESOPHAGEAL REFLUX DISEASE
     Dosage: 1 IN 1 D, PER ORAL
     Route: 048
     Dates: start: 20120101, end: 20120717

REACTIONS (3)
  - DYSPHONIA [None]
  - ABDOMINAL PAIN UPPER [None]
  - HEPATIC LESION [None]
